FAERS Safety Report 4702373-9 (Version None)
Quarter: 2005Q2

REPORT INFORMATION
  Report Type: 
  Country: None (occurrence: None)
  Receive Date: 20050113
  Receipt Date: 20050113
  Transmission Date: 20051028
  Serious: Yes (Other)
  Sender: FDA-Public Use
  Company Number: None

PATIENT
  Sex: Female
  Weight: 60.3284 kg

DRUGS (1)
  1. KLONOPIN [Suspect]
     Dosage: 1 MG TID PO
     Route: 048

REACTIONS (5)
  - ANXIETY [None]
  - CONDITION AGGRAVATED [None]
  - HEART RATE INCREASED [None]
  - PANIC ATTACK [None]
  - THERAPEUTIC RESPONSE UNEXPECTED WITH DRUG SUBSTITUTION [None]
